FAERS Safety Report 17653861 (Version 1)
Quarter: 2020Q2

REPORT INFORMATION
  Report Type: Report from Study
  Country: None (occurrence: US)
  Receive Date: 20200409
  Receipt Date: 20200409
  Transmission Date: 20200713
  Serious: Yes (Hospitalization)
  Sender: FDA-Public Use
  Company Number: US-ABBVIE-20K-163-3357013-00

PATIENT
  Age: 69 Year
  Sex: Female

DRUGS (5)
  1. VENCLEXTA [Suspect]
     Active Substance: VENETOCLAX
     Route: 048
     Dates: start: 20190426, end: 201906
  2. VENCLEXTA [Suspect]
     Active Substance: VENETOCLAX
     Route: 048
     Dates: start: 2019, end: 201908
  3. VENCLEXTA [Suspect]
     Active Substance: VENETOCLAX
     Indication: CHRONIC LYMPHOCYTIC LEUKAEMIA
     Route: 048
     Dates: end: 201902
  4. VENCLEXTA [Suspect]
     Active Substance: VENETOCLAX
     Route: 048
     Dates: start: 2019, end: 201904
  5. VENCLEXTA [Suspect]
     Active Substance: VENETOCLAX
     Route: 048
     Dates: start: 201908

REACTIONS (18)
  - Haemolysis [Unknown]
  - Blood pressure systolic increased [Unknown]
  - Mean cell haemoglobin concentration abnormal [Unknown]
  - Neutrophil count abnormal [Unknown]
  - Diarrhoea [Recovered/Resolved]
  - Agitation [Unknown]
  - Blood immunoglobulin A abnormal [Unknown]
  - Abdominal pain [Not Recovered/Not Resolved]
  - Red cell distribution width abnormal [Unknown]
  - Blood immunoglobulin M abnormal [Unknown]
  - Diarrhoea [Not Recovered/Not Resolved]
  - Myalgia [Unknown]
  - Musculoskeletal stiffness [Unknown]
  - Dry eye [Unknown]
  - Visual impairment [Unknown]
  - Diarrhoea [Recovered/Resolved]
  - Pyrexia [Unknown]
  - Sinusitis [Unknown]

NARRATIVE: CASE EVENT DATE: 2019
